FAERS Safety Report 5228905-2 (Version None)
Quarter: 2007Q1

REPORT INFORMATION
  Report Type: 
  Country: None (occurrence: None)
  Receive Date: 20070205
  Receipt Date: 20051004
  Transmission Date: 20070707
  Serious: Yes (Disabling)
  Sender: FDA-Public Use
  Company Number: 2007SE00624

PATIENT
  Age: 56 Year
  Sex: Female

DRUGS (14)
  1. SEROQUEL [Suspect]
     Route: 048
  2. SEROQUEL [Suspect]
     Route: 048
  3. SEROQUEL [Suspect]
     Route: 048
  4. FLUANXOL DEPOT [Concomitant]
  5. FLUANXOL DEPOT [Concomitant]
  6. FLUANXOL DEPOT [Concomitant]
  7. NOZINAN [Concomitant]
  8. NOZINAN [Concomitant]
  9. KEMADRIN [Concomitant]
  10. KEMADRIN [Concomitant]
  11. KEMADRIN [Concomitant]
  12. IMOVANE [Concomitant]
  13. CENTUL KCL [Concomitant]
  14. ORABET [Concomitant]

REACTIONS (6)
  - AKATHISIA [None]
  - CONSTIPATION [None]
  - DIZZINESS POSTURAL [None]
  - PARKINSONISM [None]
  - SALIVARY HYPERSECRETION [None]
  - SEXUAL DYSFUNCTION [None]
